FAERS Safety Report 15552142 (Version 1)
Quarter: 2018Q4

REPORT INFORMATION
  Report Type: Report from Study
  Country: US (occurrence: US)
  Receive Date: 20181025
  Receipt Date: 20181025
  Transmission Date: 20190205
  Serious: Yes (Hospitalization)
  Sender: FDA-Public Use
  Company Number: PHEH2018US044569

PATIENT
  Age: 14 Year
  Sex: Male

DRUGS (1)
  1. ILARIS [Suspect]
     Active Substance: CANAKINUMAB
     Indication: PRODUCT USED FOR UNKNOWN INDICATION
     Dosage: 150 MG, QMO
     Route: 058

REACTIONS (7)
  - Dehydration [Unknown]
  - Pyrexia [Unknown]
  - Constipation [Unknown]
  - Malaise [Unknown]
  - Gastroenteritis viral [Unknown]
  - Vomiting [Unknown]
  - Condition aggravated [Unknown]
